FAERS Safety Report 13585069 (Version 6)
Quarter: 2017Q4

REPORT INFORMATION
  Report Type: Report from Study
  Country: US (occurrence: US)
  Receive Date: 20170526
  Receipt Date: 20171108
  Transmission Date: 20180320
  Serious: Yes (Hospitalization, Other)
  Sender: FDA-Public Use
  Company Number: US-ALEXION-A201705579

PATIENT
  Sex: Female

DRUGS (3)
  1. MEROPENEM. [Concomitant]
     Active Substance: MEROPENEM
     Indication: PRODUCT USED FOR UNKNOWN INDICATION
     Route: 065
  2. STRENSIQ [Suspect]
     Active Substance: ASFOTASE ALFA
     Dosage: UNK
     Route: 058
  3. STRENSIQ [Suspect]
     Active Substance: ASFOTASE ALFA
     Indication: HYPOPHOSPHATASIA
     Dosage: UNK, 3 TIMES A WEEK
     Route: 058
     Dates: start: 201511

REACTIONS (7)
  - Hypersensitivity [Unknown]
  - Condition aggravated [Recovered/Resolved]
  - Pyrexia [Unknown]
  - Chills [Unknown]
  - Wound infection [Recovered/Resolved]
  - Postoperative wound infection [Unknown]
  - Rash [Unknown]

NARRATIVE: CASE EVENT DATE: 201703
